FAERS Safety Report 23967584 (Version 1)
Quarter: 2024Q2

REPORT INFORMATION
  Report Type: Report from Study
  Country: RU (occurrence: RU)
  Receive Date: 20240612
  Receipt Date: 20240612
  Transmission Date: 20240716
  Serious: Yes (Hospitalization, Other)
  Sender: FDA-Public Use
  Company Number: RU-002147023-NVSC2023RU280689

PATIENT
  Age: 2 Year
  Sex: Female
  Weight: 3.15 kg

DRUGS (18)
  1. ZOLGENSMA [Suspect]
     Active Substance: ONASEMNOGENE ABEPARVOVEC-XIOI
     Indication: Spinal muscular atrophy
     Dosage: 58 ML, ONCE/SINGLE
     Route: 042
     Dates: start: 20221219, end: 20221219
  2. PREDNISOLONE [Concomitant]
     Active Substance: PREDNISOLONE
     Indication: Product used for unknown indication
     Dosage: 1.7 MG
     Route: 048
  3. PREDNISOLONE [Concomitant]
     Active Substance: PREDNISOLONE
     Dosage: 0.6 MG (GRADUALLY DECREASED FROM 1.7 MG)
     Route: 048
     Dates: start: 20221220
  4. OMEPRAZOLE [Concomitant]
     Active Substance: DONEPEZIL HYDROCHLORIDE\OMEPRAZOLE\OMEPRAZOLE MAGNESIUM
     Indication: Product used for unknown indication
     Dosage: 10 MG, QD
     Route: 065
     Dates: start: 202301
  5. AMLODIPINE [Concomitant]
     Active Substance: AMLODIPINE BESYLATE
     Indication: Blood pressure measurement
     Dosage: 5 MG
     Route: 065
  6. EXHOL [Concomitant]
     Indication: Product used for unknown indication
     Dosage: 125 MG, QD, (PATIENT TOOK A COURSE OF IT, THEN HAD A BREAK FOR A MONTH, THEN THE PATIENT WERE PRESCR
     Route: 065
     Dates: start: 20221230
  7. BISOPROLOL [Concomitant]
     Active Substance: BISOPROLOL\BISOPROLOL FUMARATE
     Indication: Blood pressure measurement
     Dosage: 5 MG, QD (2 TABLETS)
     Route: 065
     Dates: start: 202302
  8. SPIRONOLACTONE [Concomitant]
     Active Substance: SPIRONOLACTONE
     Indication: Product used for unknown indication
     Dosage: 50 MG, QD
     Route: 065
  9. SPIRONOLACTONE [Concomitant]
     Active Substance: SPIRONOLACTONE
     Dosage: 25 MG QD,(DECREASED FROM 50 MG)
     Route: 065
     Dates: start: 20230211
  10. ENALAPRIL [Concomitant]
     Active Substance: ENALAPRIL
     Indication: Product used for unknown indication
     Dosage: 5 MG, QD
     Route: 065
     Dates: start: 20230330
  11. PYRIDOXINE HYDROCHLORIDE [Concomitant]
     Active Substance: PYRIDOXINE HYDROCHLORIDE
     Indication: Product used for unknown indication
     Dosage: 10 MG, QD
     Route: 065
     Dates: start: 20230417
  12. METHYLPREDNISOLONE [Concomitant]
     Active Substance: METHYLPREDNISOLONE
     Indication: Product used for unknown indication
     Dosage: 30 MG/KG, QD
     Route: 065
  13. HEPARIN [Concomitant]
     Active Substance: HEPARIN SODIUM
     Indication: Product used for unknown indication
     Dosage: 100 U/ KG
     Route: 065
     Dates: start: 20221230
  14. ACETYLCYSTEINE [Concomitant]
     Active Substance: ACETYLCYSTEINE
     Indication: Product used for unknown indication
     Dosage: 10 MG/KG, QD
     Route: 065
     Dates: start: 20221230
  15. HUMAN PLASMA [Concomitant]
     Active Substance: HUMAN PLASMA
     Indication: Product used for unknown indication
     Dosage: 10 ML/KG, BID
     Route: 065
     Dates: start: 20221230
  16. MIDAZOLAM [Concomitant]
     Active Substance: MIDAZOLAM
     Indication: Product used for unknown indication
     Dosage: 30 MG/KG/H
     Route: 065
     Dates: start: 20221230
  17. OMEPRAZOLE [Concomitant]
     Active Substance: DONEPEZIL HYDROCHLORIDE\OMEPRAZOLE\OMEPRAZOLE MAGNESIUM
     Indication: Product used for unknown indication
     Dosage: 20 MG, QD
     Route: 065
     Dates: start: 20221230
  18. EXCOL [Concomitant]
     Indication: Product used for unknown indication
     Dosage: UNK
     Route: 065

REACTIONS (47)
  - Atypical haemolytic uraemic syndrome [Unknown]
  - Renal failure [Recovering/Resolving]
  - Pulmonary oedema [Recovered/Resolved]
  - Thrombosis [Recovered/Resolved]
  - Blood pressure increased [Recovering/Resolving]
  - Anaemia [Unknown]
  - COVID-19 [Recovered/Resolved]
  - Oedema peripheral [Unknown]
  - Hepatic failure [Unknown]
  - Abdominal distension [Unknown]
  - Anuria [Unknown]
  - Vomiting [Unknown]
  - Decreased appetite [Unknown]
  - Lethargy [Unknown]
  - Hepatitis [Unknown]
  - Quadriparesis [Unknown]
  - Cholestasis [Unknown]
  - Thrombocytopenia [Unknown]
  - Abnormal faeces [Unknown]
  - Polyuria [Unknown]
  - Tremor [Unknown]
  - General physical health deterioration [Unknown]
  - Disorientation [Unknown]
  - Sedation [Unknown]
  - Dysuria [Unknown]
  - Sinusitis [Unknown]
  - Urinary tract infection [Unknown]
  - Skin maceration [Unknown]
  - Peritoneal dialysate leakage [Unknown]
  - Blood uric acid decreased [Unknown]
  - Monocyte count increased [Unknown]
  - Neutrophil count increased [Unknown]
  - White blood cell count increased [Unknown]
  - Respiratory tract infection [Unknown]
  - Anxiety [Unknown]
  - Rhinovirus infection [Unknown]
  - Motor dysfunction [Unknown]
  - Chronic gastritis [Unknown]
  - Oesophagitis [Unknown]
  - Accommodation disorder [Unknown]
  - Gait disturbance [Unknown]
  - Abdominal pain [Unknown]
  - Constipation [Unknown]
  - Chromaturia [Unknown]
  - Illness [Unknown]
  - Pyrexia [Recovered/Resolved]
  - Pyrexia [Unknown]

NARRATIVE: CASE EVENT DATE: 20221220
